FAERS Safety Report 21694427 (Version 2)
Quarter: 2023Q4

REPORT INFORMATION
  Report Type: Spontaneous
  Country: US (occurrence: US)
  Receive Date: 20221207
  Receipt Date: 20231208
  Transmission Date: 20240110
  Serious: Yes (Hospitalization)
  Sender: FDA-Public Use
  Company Number: US-NOVOPROD-953254

PATIENT
  Age: 73 Year
  Sex: Female

DRUGS (2)
  1. NOVOLIN N [Suspect]
     Active Substance: INSULIN HUMAN
     Indication: Product used for unknown indication
     Dosage: 21 IU, QD (60 UNITS AM AND 15 UNITS PM)
     Route: 058
  2. CABOMETYX [Suspect]
     Active Substance: CABOZANTINIB S-MALATE
     Indication: Product used for unknown indication
     Dosage: 40 MG
     Route: 048

REACTIONS (8)
  - Blood glucose decreased [Unknown]
  - Nausea [Recovering/Resolving]
  - Vomiting [Recovering/Resolving]
  - Oral pain [Recovered/Resolved]
  - Dysgeusia [Recovered/Resolved]
  - Diarrhoea [Unknown]
  - Thyroid disorder [Unknown]
  - Peripheral swelling [Unknown]
